APPROVED DRUG PRODUCT: LEXIVA
Active Ingredient: FOSAMPRENAVIR CALCIUM
Strength: EQ 700MG BASE **Federal Register determination that product was not discontinued or withdrawn for safety or effectiveness reasons**
Dosage Form/Route: TABLET;ORAL
Application: N021548 | Product #001
Applicant: VIIV HEALTHCARE CO
Approved: Oct 20, 2003 | RLD: Yes | RS: No | Type: DISCN